FAERS Safety Report 16295276 (Version 1)
Quarter: 2019Q2

REPORT INFORMATION
  Report Type: Spontaneous
  Country: CN (occurrence: CN)
  Receive Date: 20190509
  Receipt Date: 20190509
  Transmission Date: 20190711
  Serious: Yes (Other)
  Sender: FDA-Public Use
  Company Number: CN-BAXTER-2019BAX009072

PATIENT
  Age: 44 Year
  Sex: Female
  Weight: 61.7 kg

DRUGS (6)
  1. 0.9% SODIUM CHLORIDE INJECTION [Suspect]
     Active Substance: SODIUM CHLORIDE
     Dosage: CYCLOPHOSPHAMIDE FOR INJECTION 0.8G + 0.9% NS 50 ML, IV ST
     Route: 042
     Dates: start: 20190418, end: 20190418
  2. PIRARUBICIN HYDROCHLORIDE [Suspect]
     Active Substance: PIRARUBICIN HYDROCHLORIDE
     Indication: BREAST CANCER FEMALE
     Dosage: PIRARUBICIN HYDROCHLORIDE FOR INJECTION 60 MG + 5% GS 50 ML, IV ST
     Route: 042
     Dates: start: 20190418, end: 20190418
  3. PACLITAXEL (ALBUMIN BOUND) [Suspect]
     Active Substance: PACLITAXEL
     Indication: BREAST CANCER FEMALE
     Dosage: PACLITAXEL FOR INJECTION (ALBUMIN BOUND) + 0.9% NS 250 ML, IVGTT ST
     Route: 041
     Dates: start: 20190418, end: 20190418
  4. ENDOXAN [Suspect]
     Active Substance: CYCLOPHOSPHAMIDE
     Indication: BREAST CANCER FEMALE
     Dosage: CYCLOPHOSPHAMIDE FOR INJECTION 0.8 G + 0.9% NS 50 ML, IV ST
     Route: 042
     Dates: start: 20190418, end: 20190418
  5. 5% GLUCOSE  INJECTION [Suspect]
     Active Substance: DEXTROSE
     Indication: MEDICATION DILUTION
     Dosage: PIRARUBICIN HYDROCHLORIDE FOR INJECTION 60 MG + 5% GS 50 ML, IV ST
     Route: 042
     Dates: start: 20190418, end: 20190418
  6. 0.9% SODIUM CHLORIDE INJECTION [Suspect]
     Active Substance: SODIUM CHLORIDE
     Indication: MEDICATION DILUTION
     Dosage: PACLITAXEL FOR INJECTION (ALBUMIN BOUND) + 0.9% NS 250 ML, IVGTT ST
     Route: 041
     Dates: start: 20190418, end: 20190418

REACTIONS (1)
  - Leukopenia [Unknown]

NARRATIVE: CASE EVENT DATE: 20190425
